FAERS Safety Report 10235017 (Version 3)
Quarter: 2014Q2

REPORT INFORMATION
  Report Type: Spontaneous
  Country: JP (occurrence: JP)
  Receive Date: 20140613
  Receipt Date: 20140626
  Transmission Date: 20141212
  Serious: Yes (Hospitalization)
  Sender: FDA-Public Use
  Company Number: JP-ROCHE-1369376

PATIENT
  Age: 61 Year
  Sex: Female
  Weight: 58 kg

DRUGS (26)
  1. XELODA [Suspect]
     Indication: BREAST CANCER METASTATIC
     Dosage: DOSAGE IS UNCERTAIN.
     Route: 048
     Dates: start: 20131107, end: 201311
  2. XELODA [Suspect]
     Indication: BREAST CANCER METASTATIC
     Dosage: DOSAGE IS UNCERTAIN.
     Route: 048
     Dates: start: 20131125, end: 20140127
  3. PERJETA [Suspect]
     Indication: BREAST CANCER METASTATIC
     Dosage: 420MG/14ML
     Route: 041
     Dates: start: 20140218, end: 20140218
  4. PERJETA [Suspect]
     Indication: BREAST CANCER METASTATIC
     Route: 041
     Dates: start: 20140310, end: 20140310
  5. HERCEPTIN [Suspect]
     Indication: NEOADJUVANT THERAPY
     Dosage: DOSAGE IS UNCERTAIN.
     Route: 041
     Dates: start: 201106, end: 2011
  6. HERCEPTIN [Suspect]
     Indication: ADJUVANT THERAPY
     Dosage: DOSAGE IS UNCERTAIN.
     Route: 041
     Dates: start: 201202, end: 201302
  7. HERCEPTIN [Suspect]
     Indication: BREAST CANCER METASTATIC
     Dosage: DOSAGE IS UNCERTAIN.
     Route: 041
     Dates: start: 20131107, end: 20131107
  8. HERCEPTIN [Suspect]
     Indication: BREAST CANCER METASTATIC
     Dosage: DOSAGE IS UNCERTAIN.
     Route: 041
     Dates: start: 20131125, end: 20140127
  9. HERCEPTIN [Suspect]
     Indication: BREAST CANCER METASTATIC
     Dosage: DOSAGE IS UNCERTAIN.
     Route: 041
     Dates: start: 20140218, end: 20140218
  10. HERCEPTIN [Suspect]
     Indication: BREAST CANCER METASTATIC
     Dosage: DOSAGE IS UNCERTAIN.
     Route: 041
     Dates: start: 20140310, end: 20140310
  11. DOCETAXEL [Suspect]
     Indication: NEOADJUVANT THERAPY
     Dosage: DOSAGE IS UNCERTAIN.
     Route: 041
     Dates: start: 201106, end: 2011
  12. DOCETAXEL [Suspect]
     Indication: BREAST CANCER METASTATIC
     Route: 041
     Dates: start: 20140218, end: 20140310
  13. DECADRON [Concomitant]
     Indication: PROPHYLAXIS
     Route: 048
     Dates: start: 20140208, end: 20140220
  14. DECADRON [Concomitant]
     Indication: PROPHYLAXIS
     Route: 048
     Dates: start: 20140310, end: 20140312
  15. DECADRON [Concomitant]
     Indication: PROPHYLAXIS
     Route: 041
     Dates: start: 20140218, end: 20140310
  16. MOBIC [Concomitant]
     Indication: BREAST CANCER METASTATIC
     Route: 048
     Dates: start: 20140203, end: 20140309
  17. ALESION [Concomitant]
     Indication: SEASONAL ALLERGY
     Route: 048
     Dates: start: 20140222, end: 20140315
  18. PREDONINE [Concomitant]
     Indication: SEASONAL ALLERGY
     Dosage: SINGLE DOSE ADMINISTRATION
     Route: 048
     Dates: start: 20140305, end: 20140305
  19. PREDONINE [Concomitant]
     Route: 065
     Dates: start: 20140318, end: 20140320
  20. PREDONINE [Concomitant]
     Route: 065
     Dates: start: 20140321, end: 20140324
  21. PRANLUKAST [Concomitant]
     Indication: SEASONAL ALLERGY
     Route: 048
     Dates: start: 20140305, end: 20140318
  22. JUZENTAIHOTO [Concomitant]
     Indication: SEASONAL ALLERGY
     Route: 048
     Dates: start: 20140315, end: 20140318
  23. ENDOXAN [Concomitant]
     Indication: NEOADJUVANT THERAPY
     Route: 041
     Dates: start: 2011, end: 201112
  24. EPIRUBICIN HYDROCHLORIDE [Concomitant]
     Indication: NEOADJUVANT THERAPY
     Route: 041
     Dates: start: 2011, end: 201112
  25. 5-FU [Concomitant]
     Indication: NEOADJUVANT THERAPY
     Route: 041
     Dates: start: 2011, end: 201112
  26. 5-FU [Concomitant]
     Route: 040
     Dates: start: 2011, end: 201112

REACTIONS (5)
  - Skin disorder [Recovering/Resolving]
  - Neutrophil count decreased [Recovered/Resolved]
  - Rash [Recovered/Resolved]
  - Palmar-plantar erythrodysaesthesia syndrome [Recovered/Resolved]
  - Skin exfoliation [Recovered/Resolved]
